FAERS Safety Report 4278473-7 (Version None)
Quarter: 2004Q1

REPORT INFORMATION
  Report Type: 
  Country: None (occurrence: None)
  Receive Date: 20040123
  Receipt Date: 20030407
  Transmission Date: 20041129
  Serious: Yes (Disabling)
  Sender: FDA-Public Use
  Company Number: WAES 0304USA00746

PATIENT
  Age: 32 Year
  Sex: Female
  Weight: 90 kg

DRUGS (5)
  1. ANALGESIC OR ANESTHETIC (UNSPECIFIED) [Concomitant]
  2. ANTIMICROBIAL (UNSPECIFIED) [Concomitant]
  3. BUTALBITAL [Concomitant]
  4. VIOXX [Suspect]
     Indication: FIBROMYALGIA
     Route: 048
     Dates: start: 20000101, end: 20010101
  5. VIOXX [Suspect]
     Indication: PAIN
     Route: 048
     Dates: start: 20000101, end: 20010101

REACTIONS (15)
  - ABDOMINAL DISCOMFORT [None]
  - ABDOMINAL PAIN [None]
  - CARDIAC MURMUR [None]
  - CHEST PAIN [None]
  - CHEST WALL PAIN [None]
  - EMOTIONAL DISTRESS [None]
  - ERYTHEMA [None]
  - FEAR [None]
  - HEART INJURY [None]
  - INJURY [None]
  - INTERVERTEBRAL DISC PROTRUSION [None]
  - RECTAL HAEMORRHAGE [None]
  - SKIN DISCOLOURATION [None]
  - STRESS SYMPTOMS [None]
  - THROMBOSIS [None]
